FAERS Safety Report 6289076-7 (Version None)
Quarter: 2009Q3

REPORT INFORMATION
  Report Type: 
  Country: None (occurrence: None)
  Receive Date: 20090728
  Receipt Date: 20090723
  Transmission Date: 20100115
  Serious: Yes (Death)
  Sender: FDA-Public Use
  Company Number: SPV1-2009-00953

PATIENT
  Age: 38 Year
  Sex: Female

DRUGS (2)
  1. FOSRENOL [Suspect]
     Dosage: ONE TABLET EACH MEAL, ORAL
     Route: 048
     Dates: start: 20050401, end: 20051001
  2. OMNISCAN [Suspect]
     Indication: NUCLEAR MAGNETIC RESONANCE IMAGING ABDOMINAL

REACTIONS (3)
  - HAEMODIALYSIS [None]
  - INVESTIGATION ABNORMAL [None]
  - NEPHROGENIC SYSTEMIC FIBROSIS [None]
